FAERS Safety Report 11027379 (Version 1)
Quarter: 2015Q2

REPORT INFORMATION
  Report Type: Spontaneous
  Country: US (occurrence: US)
  Receive Date: 20150414
  Receipt Date: 20150414
  Transmission Date: 20150821
  Serious: No
  Sender: FDA-Public Use
  Company Number: US-ASTRAZENECA-2015SE34220

PATIENT
  Age: 1048 Month
  Sex: Female
  Weight: 57.9 kg

DRUGS (5)
  1. CRESTOR [Suspect]
     Active Substance: ROSUVASTATIN CALCIUM
     Indication: BLOOD CHOLESTEROL INCREASED
     Dosage: 5 MG THREE TIMES A WEEK.
     Route: 048
  2. MULTIVITAMIN [Concomitant]
     Active Substance: VITAMINS
     Indication: SUPPLEMENTATION THERAPY
  3. CRESTOR [Suspect]
     Active Substance: ROSUVASTATIN CALCIUM
     Indication: BLOOD CHOLESTEROL INCREASED
     Route: 048
     Dates: start: 201411, end: 201501
  4. COQ10 [Concomitant]
     Active Substance: UBIDECARENONE
     Indication: ADJUVANT THERAPY
     Dates: start: 201411
  5. CITRICAL PLUS D [Concomitant]

REACTIONS (4)
  - Therapeutic response unexpected [Recovering/Resolving]
  - Blood cholesterol increased [Unknown]
  - Off label use [Not Recovered/Not Resolved]
  - Blood glucose increased [Unknown]

NARRATIVE: CASE EVENT DATE: 201501
